FAERS Safety Report 10051389 (Version 1)
Quarter: 2014Q2

REPORT INFORMATION
  Report Type: Spontaneous
  Country: US (occurrence: US)
  Receive Date: 20140401
  Receipt Date: 20140401
  Transmission Date: 20141212
  Serious: Yes (Hospitalization, Other)
  Sender: FDA-Public Use
  Company Number: US-PFIZER INC-2014091890

PATIENT
  Age: 71 Year
  Sex: Male
  Weight: 87.08 kg

DRUGS (4)
  1. CHANTIX [Suspect]
     Indication: SMOKING CESSATION THERAPY
     Dosage: UNK
     Dates: start: 201402, end: 20140304
  2. BENICAR [Concomitant]
     Indication: HYPERTENSION
     Dosage: 40 MG, DAILY
  3. METFORMIN [Concomitant]
     Indication: DIABETES MELLITUS
     Dosage: (1000 MG IN MORNING AND 1500 MG IN EVENING), 2X/DAY
  4. JANUVIA [Concomitant]
     Dosage: 100 MG, DAILY

REACTIONS (3)
  - Suicide attempt [Unknown]
  - Depression [Unknown]
  - Abnormal dreams [Unknown]
